FAERS Safety Report 9214526 (Version 4)
Quarter: 2013Q3

REPORT INFORMATION
  Report Type: Report from Study
  Country: ZA (occurrence: ZA)
  Receive Date: 20130405
  Receipt Date: 20130925
  Transmission Date: 20140515
  Serious: Yes (Other)
  Sender: FDA-Public Use
  Company Number: ZA-ROCHE-1209389

PATIENT
  Age: 76 Year
  Sex: Male

DRUGS (3)
  1. LUCENTIS [Suspect]
     Indication: AGE-RELATED MACULAR DEGENERATION
     Route: 050
     Dates: start: 20121108
  2. LUCENTIS [Suspect]
     Route: 050
     Dates: start: 20121206
  3. LUCENTIS [Suspect]
     Route: 050
     Dates: start: 20130112

REACTIONS (6)
  - Visual acuity reduced [Unknown]
  - Corneal lesion [Unknown]
  - Retinal exudates [Unknown]
  - Subretinal fluid [Unknown]
  - Visual impairment [Unknown]
  - Retinal disorder [Unknown]
